FAERS Safety Report 7473011-X (Version None)
Quarter: 2011Q2

REPORT INFORMATION
  Report Type: 
  Country: None (occurrence: None)
  Receive Date: 20110511
  Receipt Date: 20110504
  Transmission Date: 20111010
  Serious: Yes (Hospitalization, Other)
  Sender: FDA-Public Use
  Company Number: US-ROCHE-657574

PATIENT
  Sex: Male
  Weight: 66.2 kg

DRUGS (2)
  1. ACCUTANE [Suspect]
     Indication: ACNE
     Route: 065
     Dates: start: 20020325, end: 20021001
  2. ALLEGRA [Concomitant]

REACTIONS (9)
  - RENAL DISORDER [None]
  - INFLAMMATORY BOWEL DISEASE [None]
  - DEPRESSION [None]
  - SUICIDAL IDEATION [None]
  - HAEMORRHOIDS [None]
  - ORAL HERPES [None]
  - IRRITABLE BOWEL SYNDROME [None]
  - HAEMATOCHEZIA [None]
  - COLITIS ULCERATIVE [None]
